FAERS Safety Report 14287269 (Version 1)
Quarter: 2017Q4

REPORT INFORMATION
  Report Type: Spontaneous
  Country: US (occurrence: US)
  Receive Date: 20171214
  Receipt Date: 20171214
  Transmission Date: 20180321
  Serious: Yes (Other)
  Sender: FDA-Public Use
  Company Number: US-PFIZER INC-2017530965

PATIENT
  Age: 72 Year
  Sex: Male
  Weight: 74 kg

DRUGS (18)
  1. FLUCONAZOLE. [Concomitant]
     Active Substance: FLUCONAZOLE
     Indication: PROPHYLAXIS
     Dosage: 250 MG, 1X/DAY
     Route: 048
     Dates: start: 2011
  2. ONDANSETRON [Concomitant]
     Active Substance: ONDANSETRON
     Indication: VOMITING
  3. MIDODRINE [Concomitant]
     Active Substance: MIDODRINE
     Indication: CARDIAC DISORDER
     Dosage: 5 MG, 3X/DAY
     Dates: start: 2017
  4. ONDANSETRON [Concomitant]
     Active Substance: ONDANSETRON
     Indication: NAUSEA
     Dosage: 4MG TABLET EVERY 6 HOURS AS NEEDED
     Dates: start: 2015
  5. FENTANYL. [Concomitant]
     Active Substance: FENTANYL
     Indication: PAIN
     Dosage: 25MG PATCH APPLIED EVERY THREE DAYS
     Dates: start: 201608
  6. TYLENOL [Concomitant]
     Active Substance: ACETAMINOPHEN
     Indication: PYREXIA
     Dosage: 500 MG, AS NEEDED
  7. ELIQUIS [Concomitant]
     Active Substance: APIXABAN
     Indication: ANTICOAGULANT THERAPY
     Dosage: 2.5MG TABLET TWICE A DAY
     Route: 048
     Dates: start: 201701
  8. RANITIDINE. [Concomitant]
     Active Substance: RANITIDINE
     Dosage: 150 MG, 2X/DAY
     Route: 048
  9. BACTRIM [Concomitant]
     Active Substance: SULFAMETHOXAZOLE\TRIMETHOPRIM
     Dosage: 400 MG,  ONCE A DAY
     Route: 048
     Dates: start: 200808
  10. IMODIUM [Concomitant]
     Active Substance: LOPERAMIDE HYDROCHLORIDE
     Indication: DIARRHOEA
     Dosage: 2 MG, AS NEEDED
  11. VITAMIN B12 [Concomitant]
     Active Substance: CYANOCOBALAMIN
     Indication: VITAMIN B12 DEFICIENCY
     Dosage: 1000MCG INJECTION ONCE A MONTH
     Dates: start: 2011
  12. ATROPINE SULFATE/DIPHENOXYLATE HYDROCHLORIDE [Suspect]
     Active Substance: ATROPINE SULFATE\DIPHENOXYLATE HYDROCHLORIDE
     Indication: DIARRHOEA
     Dosage: ONE TABLET ,FOUR TIMES A DAY BY MOUTH
     Route: 048
     Dates: start: 20170605, end: 201707
  13. SPIRONOLACTONE. [Concomitant]
     Active Substance: SPIRONOLACTONE
     Indication: SWELLING
     Dosage: 25MG HALF TABLET ONCE A DAY
     Route: 048
  14. VITRON-C [Concomitant]
     Active Substance: ASCORBIC ACID\IRON
     Indication: BLOOD IRON ABNORMAL
     Dosage: TABLET TWICE A DAY. DOES NOT KNOW DOSE
     Route: 048
     Dates: start: 2011
  15. ACYCLOVIR. [Concomitant]
     Active Substance: ACYCLOVIR
     Dosage: 400MG ,TWICE A DAY
     Route: 048
     Dates: start: 200808
  16. DEXAMETHASONE. [Concomitant]
     Active Substance: DEXAMETHASONE
     Dosage: 4MG 5 TABLETS ONCE A WEEK
     Route: 048
  17. HYDROCODONE/ACETAMINOPHEN [Concomitant]
     Active Substance: ACETAMINOPHEN\HYDROCODONE
     Indication: BACK PAIN
     Dosage: [HYDROCODONE BITARTRATE 10MG / PARACETAMOL 325MG] TABLET EVERY 4 HOURS AS NEEDED
  18. POMALYST [Concomitant]
     Active Substance: POMALIDOMIDE
     Indication: CHEMOTHERAPY
     Dosage: 2MG TABLET ONCE A DAY FOR 21 DAYS AND THEN OFF FOR 7 DAYS
     Route: 048

REACTIONS (2)
  - Intestinal obstruction [Recovered/Resolved]
  - Product use issue [Unknown]

NARRATIVE: CASE EVENT DATE: 20170621
